FAERS Safety Report 5109275-7 (Version None)
Quarter: 2006Q3

REPORT INFORMATION
  Report Type: 
  Country: None (occurrence: None)
  Receive Date: 20060920
  Receipt Date: 20060919
  Transmission Date: 20061208
  Serious: Yes (Other)
  Sender: FDA-Public Use
  Company Number: US-GLAXOSMITHKLINE-A0620650A

PATIENT
  Age: 77 Year
  Sex: Female

DRUGS (8)
  1. CITRUCEL SUSPENSION ORANGE [Suspect]
     Indication: GASTROINTESTINAL DISORDER
     Route: 048
     Dates: start: 20060914, end: 20060914
  2. ULTRAM [Concomitant]
  3. VICODIN [Concomitant]
  4. NEURONTIN [Concomitant]
  5. SEROXAT [Concomitant]
  6. PRILOSEC [Concomitant]
  7. INDERAL [Concomitant]
  8. XANAX [Concomitant]

REACTIONS (5)
  - ANXIETY [None]
  - HAEMATOCHEZIA [None]
  - LOSS OF CONSCIOUSNESS [None]
  - NAUSEA [None]
  - VERTIGO [None]
